FAERS Safety Report 21873020 (Version 1)
Quarter: 2023Q1

REPORT INFORMATION
  Report Type: Spontaneous
  Country: JP (occurrence: JP)
  Receive Date: 20230117
  Receipt Date: 20230117
  Transmission Date: 20230418
  Serious: Yes (Death, Other)
  Sender: FDA-Public Use
  Company Number: JP-GUERBETG_JAPAN-MSI 2003 0002

PATIENT
  Age: 73 Year
  Sex: Male

DRUGS (5)
  1. LIPIODOL [Suspect]
     Active Substance: ETHIODIZED OIL
     Indication: Therapeutic embolisation
     Route: 013
     Dates: start: 20011112, end: 20011112
  2. SMANCS [Concomitant]
     Indication: Hepatocellular carcinoma
     Route: 013
     Dates: start: 20011015, end: 20011015
  3. SMANCS SUSPENSION FOR ARTERIAL INFUSION [Concomitant]
     Indication: Hepatocellular carcinoma
     Route: 013
     Dates: start: 20011015, end: 20011015
  4. EPIRUBICIN [Concomitant]
     Active Substance: EPIRUBICIN
     Indication: Hepatocellular carcinoma
     Route: 013
     Dates: start: 20011112, end: 20020508
  5. MITOMYCIN C [Concomitant]
     Active Substance: MITOMYCIN
     Indication: Hepatocellular carcinoma
     Route: 013
     Dates: start: 20011112, end: 20020508

REACTIONS (3)
  - Cerebral infarction [Fatal]
  - Dementia [Unknown]
  - Product use in unapproved indication [Unknown]

NARRATIVE: CASE EVENT DATE: 20020201
